FAERS Safety Report 26186502 (Version 2)
Quarter: 2025Q4

REPORT INFORMATION
  Report Type: Spontaneous
  Country: US (occurrence: US)
  Receive Date: 20251222
  Receipt Date: 20251224
  Transmission Date: 20260117
  Serious: Yes (Life-Threatening, Hospitalization, Other)
  Sender: SANOFI AVENTIS
  Company Number: US-DialogSolutions-SAAVPROD-PI855927-C1

PATIENT
  Age: 43 Year
  Sex: Male

DRUGS (3)
  1. OXALIPLATIN [Suspect]
     Active Substance: OXALIPLATIN
     Indication: Colon cancer stage III
     Dosage: FOLFOX CHEMOTHERAPY
  2. FLUOROURACIL [Concomitant]
     Active Substance: FLUOROURACIL
     Indication: Colon cancer stage III
     Dosage: FOLFOX CHEMOTHERAPY
  3. LEUCOVORIN [Concomitant]
     Active Substance: LEUCOVORIN\LEUCOVORIN CALCIUM
     Indication: Colon cancer stage III
     Dosage: FOLFOX CHEMOTHERAPY

REACTIONS (9)
  - Oesophageal varices haemorrhage [Recovering/Resolving]
  - Portal hypertension [Recovering/Resolving]
  - Myelosuppression [Recovering/Resolving]
  - Venoocclusive liver disease [Recovering/Resolving]
  - Melaena [Recovering/Resolving]
  - Haematemesis [Recovering/Resolving]
  - Upper gastrointestinal haemorrhage [Recovering/Resolving]
  - Thrombocytopenia [Unknown]
  - Splenomegaly [Unknown]
